FAERS Safety Report 16165672 (Version 1)
Quarter: 2019Q2

REPORT INFORMATION
  Report Type: Report from Study
  Country: US (occurrence: US)
  Receive Date: 20190405
  Receipt Date: 20190405
  Transmission Date: 20190711
  Serious: Yes (Other)
  Sender: FDA-Public Use
  Company Number: PHEH2019US014311

PATIENT
  Sex: Male

DRUGS (1)
  1. ENTRESTO [Suspect]
     Active Substance: SACUBITRIL\VALSARTAN
     Indication: CARDIAC FAILURE CONGESTIVE
     Route: 048

REACTIONS (6)
  - Fall [Unknown]
  - Ejection fraction decreased [Unknown]
  - Pain in extremity [Unknown]
  - Asthenia [Unknown]
  - Intervertebral disc disorder [Unknown]
  - Cardiac disorder [Unknown]
